FAERS Safety Report 5257023-2 (Version None)
Quarter: 2007Q1

REPORT INFORMATION
  Report Type: 
  Country: None (occurrence: None)
  Receive Date: 20070307
  Receipt Date: 20070228
  Transmission Date: 20070707
  Serious: Yes (Life-Threatening)
  Sender: FDA-Public Use
  Company Number: 2007AP00829

PATIENT
  Age: 68 Year
  Sex: Female
  Weight: 40 kg

DRUGS (5)
  1. MEROPEN [Suspect]
     Indication: SEPTIC SHOCK
     Route: 041
     Dates: start: 20061129, end: 20061227
  2. PHENOBARBITAL TAB [Concomitant]
     Indication: CONVULSION
     Route: 030
     Dates: start: 20061115, end: 20061117
  3. FIRSTCIN [Concomitant]
     Indication: PNEUMONIA
     Route: 041
     Dates: start: 20061116, end: 20061116
  4. PENMALIN [Concomitant]
     Indication: PNEUMONIA
     Route: 041
     Dates: start: 20061116, end: 20061124
  5. CLARITHROMYCIN [Concomitant]
     Indication: PNEUMONIA
     Route: 048
     Dates: start: 20061116, end: 20061124

REACTIONS (1)
  - EXFOLIATIVE RASH [None]
